FAERS Safety Report 6680896-3 (Version None)
Quarter: 2010Q2

REPORT INFORMATION
  Report Type: 
  Country: None (occurrence: None)
  Receive Date: 20100414
  Receipt Date: 20100408
  Transmission Date: 20101027
  Serious: Yes (Other)
  Sender: FDA-Public Use
  Company Number: US-SANOFI-AVENTIS-2010SA018282

PATIENT
  Age: 78 Year
  Sex: Female

DRUGS (9)
  1. MULTAQ [Suspect]
     Route: 048
     Dates: start: 20100323, end: 20100331
  2. COUMADIN [Concomitant]
  3. LIPITOR [Concomitant]
  4. SYNTHROID [Concomitant]
  5. TOPROL-XL [Concomitant]
     Dates: end: 20100322
  6. TOPROL-XL [Concomitant]
     Dates: start: 20100323
  7. AVAPRO [Concomitant]
  8. NORVASC [Concomitant]
  9. NEXIUM /UNK/ [Concomitant]

REACTIONS (6)
  - ABDOMINAL DISCOMFORT [None]
  - ATRIAL FIBRILLATION [None]
  - ATRIAL TACHYCARDIA [None]
  - FATIGUE [None]
  - MUSCLE TIGHTNESS [None]
  - NAUSEA [None]
